FAERS Safety Report 23523467 (Version 1)
Quarter: 2024Q1

REPORT INFORMATION
  Report Type: Spontaneous
  Country: DE (occurrence: DE)
  Receive Date: 20240214
  Receipt Date: 20240214
  Transmission Date: 20240409
  Serious: Yes (Life-Threatening, Hospitalization)
  Sender: FDA-Public Use
  Company Number: DE-002147023-NVSC2021DE051457

PATIENT
  Age: 45 Year
  Sex: Male
  Weight: 79 kg

DRUGS (24)
  1. ETOPOSIDE [Suspect]
     Active Substance: ETOPOSIDE
     Indication: Plasma cell myeloma refractory
     Dosage: EVERYDAY
     Route: 042
     Dates: start: 20200809
  2. DEXAMETHASONE [Suspect]
     Active Substance: DEXAMETHASONE
     Indication: Plasma cell myeloma refractory
     Dosage: EVERYDAY
     Route: 048
     Dates: start: 20200627
  3. POSACONAZOLE [Concomitant]
     Active Substance: POSACONAZOLE
     Indication: Neutropenia
     Dosage: POSACONAZOL
     Route: 065
     Dates: start: 20201117
  4. CARBOPLATIN [Suspect]
     Active Substance: CARBOPLATIN
     Indication: Plasma cell myeloma refractory
     Dosage: ONCE
     Route: 065
     Dates: start: 20200627
  5. MESNA [Suspect]
     Active Substance: MESNA
     Indication: Plasma cell myeloma refractory
     Dosage: ONCE
     Route: 065
     Dates: start: 20200810
  6. PANTOPRAZOLE [Concomitant]
     Active Substance: PANTOPRAZOLE
     Indication: Gastritis prophylaxis
     Dosage: PANTOPRAZOL
     Route: 065
     Dates: start: 20200627
  7. LEVOFLOXACIN [Concomitant]
     Active Substance: LEVOFLOXACIN
     Indication: Neutropenia
     Route: 065
     Dates: start: 20201017
  8. RAMIPRIL [Concomitant]
     Active Substance: RAMIPRIL
     Indication: Hypertension
     Route: 065
     Dates: start: 20200818
  9. ALLOPURINOL [Concomitant]
     Active Substance: ALLOPURINOL
     Indication: Prophylaxis
     Route: 065
     Dates: start: 20200721
  10. RITUXIMAB [Suspect]
     Active Substance: RITUXIMAB
     Indication: Plasma cell myeloma refractory
     Dosage: ONCE
     Route: 042
     Dates: start: 20200626
  11. MCP [Concomitant]
     Active Substance: METOCLOPRAMIDE HYDROCHLORIDE
     Indication: Prophylaxis of nausea and vomiting
     Route: 065
     Dates: start: 20200701
  12. TISAGENLECLEUCEL [Suspect]
     Active Substance: TISAGENLECLEUCEL
     Indication: Plasma cell myeloma refractory
     Dosage: 0.25_10E8 CELLS
     Route: 042
     Dates: start: 20201002
  13. CYTARABINE [Suspect]
     Active Substance: CYTARABINE
     Indication: Plasma cell myeloma refractory
     Dosage: 8118 MG, BID
     Route: 042
     Dates: start: 20200628
  14. BRENTUXIMAB [Concomitant]
     Active Substance: BRENTUXIMAB
     Indication: Chemotherapy
     Route: 065
     Dates: start: 20200829, end: 20200829
  15. CYCLOPHOSPHAMIDE [Concomitant]
     Active Substance: CYCLOPHOSPHAMIDE
     Indication: Chemotherapy
     Dosage: EVERYDAY
     Route: 065
     Dates: start: 20200927, end: 20200929
  16. IFOSFAMIDE [Suspect]
     Active Substance: IFOSFAMIDE
     Indication: Plasma cell myeloma refractory
     Dosage: CONTINUOUS INFUSION 24H
     Route: 065
     Dates: start: 20200810
  17. RUXOLITINIB [Concomitant]
     Active Substance: RUXOLITINIB
     Indication: Immunosuppressant drug therapy
     Route: 065
     Dates: start: 20210201
  18. FLUDARABINE [Concomitant]
     Active Substance: FLUDARABINE PHOSPHATE
     Indication: Chemotherapy
     Dosage: EVERYDAY
     Route: 065
     Dates: start: 20200927, end: 20200929
  19. BETAISODONA [Concomitant]
     Active Substance: POVIDONE-IODINE
     Indication: Prophylaxis
     Route: 065
     Dates: start: 20200627
  20. ACYCLOVIR [Concomitant]
     Active Substance: ACYCLOVIR
     Indication: Antiviral prophylaxis
     Route: 065
     Dates: start: 20200630
  21. CYCLOSPORINE [Concomitant]
     Active Substance: CYCLOSPORINE
     Indication: Immunosuppressant drug therapy
     Route: 065
     Dates: start: 20210115
  22. CYCLOSPORINE [Concomitant]
     Active Substance: CYCLOSPORINE
     Indication: Immunosuppressant drug therapy
     Route: 065
     Dates: start: 20210116
  23. AMPHO-MORONAL [Concomitant]
     Active Substance: AMPHOTERICIN B
     Indication: Antifungal prophylaxis
     Route: 065
     Dates: start: 20200627
  24. PREDNISOLONE [Concomitant]
     Active Substance: PREDNISOLONE
     Indication: Graft versus host disease
     Dosage: PREDNISOLON, 10MG QD
     Route: 065
     Dates: start: 20210115

REACTIONS (2)
  - BK virus infection [Recovered/Resolved]
  - Cystitis viral [Recovered/Resolved]

NARRATIVE: CASE EVENT DATE: 20210303
